FAERS Safety Report 6900718-2 (Version None)
Quarter: 2010Q3

REPORT INFORMATION
  Report Type: 
  Country: None (occurrence: None)
  Receive Date: 20100803
  Receipt Date: 20100723
  Transmission Date: 20110219
  Serious: Yes (Death, Life-Threatening)
  Sender: FDA-Public Use
  Company Number: DE-JNJFOC-20090809527

PATIENT
  Age: 72 Year
  Sex: Female

DRUGS (4)
  1. REOPRO [Suspect]
     Indication: PRODUCT USED FOR UNKNOWN INDICATION
     Route: 042
  2. REOPRO [Suspect]
     Route: 042
  3. TEGRETOL [Concomitant]
  4. CORVATON [Concomitant]

REACTIONS (3)
  - ATRIAL FLUTTER [None]
  - PNEUMONIA [None]
  - RENAL FAILURE ACUTE [None]
